FAERS Safety Report 23646163 (Version 4)
Quarter: 2024Q2

REPORT INFORMATION
  Report Type: Spontaneous
  Country: US (occurrence: US)
  Receive Date: 20240319
  Receipt Date: 20240507
  Transmission Date: 20240715
  Serious: No
  Sender: FDA-Public Use
  Company Number: US-JNJFOC-20240333860

PATIENT
  Age: 81 Year
  Sex: Female
  Weight: 86.26 kg

DRUGS (19)
  1. STELARA [Suspect]
     Active Substance: USTEKINUMAB
     Indication: Psoriasis
     Dosage: RECENT INJECTION ON 2/15/24
     Route: 058
     Dates: start: 202007
  2. STELARA [Suspect]
     Active Substance: USTEKINUMAB
     Route: 058
  3. MODERNA COVID-19 VACCINE [Suspect]
     Active Substance: ELASOMERAN
     Dates: start: 20231102
  4. ASPIRIN [Concomitant]
     Active Substance: ASPIRIN
     Route: 048
  5. BETAMETHASONE DIPROPIONATE [Concomitant]
     Active Substance: BETAMETHASONE DIPROPIONATE
     Dosage: 0.05 % LOTN?COMMONLY KNOWN AS: DIPRASONE
  6. CALCIUM CARBONATE [Concomitant]
     Active Substance: CALCIUM CARBONATE
     Dosage: TAKE 1,500 MG TOTAL SALT BY MOUTH ONCE DAILY. TAKE THREE TIMES PER WEEK ALTERNATE DAYS WITH 65 MG SL
  7. CYANOCOBALAMIN [Concomitant]
     Active Substance: CYANOCOBALAMIN
     Dosage: 1,000 MCG TAB COMMONLY KNOWN AS: VITAMIN B-12 ?TAKE 1 TABLET BY MOUTH THREE TIMES WEEKLY {ON MONDAY,
     Route: 048
  8. ECONAZOLE [Concomitant]
     Active Substance: ECONAZOLE
     Dosage: APPLY TO AFFECTED AREA ONCE DAILY. APPLY SUFFICIENT?QUANTITY TO COVER AFFECTED AREAS.
     Route: 061
  9. FLECAINIDE [Concomitant]
     Active Substance: FLECAINIDE
     Route: 048
  10. HYDROCORTISONE [Concomitant]
     Active Substance: HYDROCORTISONE
     Dosage: APPLY TO AFFECTED AREA TWO TIMES DAILY. APPLY?A THIN FILM TO CLEAN, DRY SKIN AND RUB IN?GENTLY.
     Route: 061
  11. LEVOTHYROXINE [Concomitant]
     Active Substance: LEVOTHYROXINE\LEVOTHYROXINE SODIUM
     Dosage: 75 MCG TAB, TAKE 1 TABLET BY MOUTH DAILY FOR 6 DAYS PER WEEK. SKIP THE 7TH DAY
     Route: 048
  12. MAGNESIUM CARBONATE [Concomitant]
     Active Substance: MAGNESIUM CARBONATE
     Route: 048
  13. SOMATROPIN [Concomitant]
     Active Substance: SOMATROPIN
     Dosage: 2.5 MG/ML- 6 DAYS PER WEEK
     Route: 058
  14. REPATHA [Concomitant]
     Active Substance: EVOLOCUMAB
     Dosage: 140 MG/ML PNIJ?GENERIC DRUG: EVOLOCUMAB
     Route: 058
  15. SIMVASTATIN [Concomitant]
     Active Substance: SIMVASTATIN
     Route: 048
  16. SPIRONOLACTONE [Concomitant]
     Active Substance: SPIRONOLACTONE
     Route: 048
  17. ERGOCALCIFEROL [Concomitant]
     Active Substance: ERGOCALCIFEROL
     Dosage: 2000 UNITS
     Route: 048
  18. IRON [Concomitant]
     Active Substance: IRON
  19. VITAMIN C [Concomitant]
     Active Substance: ASCORBIC ACID

REACTIONS (3)
  - COVID-19 [Recovered/Resolved]
  - Psoriasis [Unknown]
  - Drug ineffective [Unknown]

NARRATIVE: CASE EVENT DATE: 20200101
